FAERS Safety Report 8595447-6 (Version None)
Quarter: 2012Q3

REPORT INFORMATION
  Report Type: 
  Country: None (occurrence: None)
  Receive Date: 20120815
  Receipt Date: 20120724
  Transmission Date: 20120928
  Serious: No
  Sender: FDA-Public Use
  Company Number: US-BRISTOL-MYERS SQUIBB COMPANY-16799082

PATIENT
  Age: 75 Year
  Sex: Male
  Weight: 91 kg

DRUGS (12)
  1. ONGLYZA [Suspect]
  2. NPH INSULIN [Concomitant]
     Dosage: NPH INSULIN 10 U AM 16 HS 10 UNITS TWICE DAILY
     Route: 058
  3. LASIX [Concomitant]
     Dosage: 1 DF: LASIX 20MG TAB
  4. LISINOPRIL [Concomitant]
     Dosage: 1 DF: LISINOPRIL 5MG TBAS
  5. METOPROLOL TARTRATE [Concomitant]
  6. LOVASTATIN [Concomitant]
     Dosage: 1 DF: 1 TABS OF LOVASTATIN 40MG
  7. COUMADIN [Suspect]
     Dosage: 1 DF:1 TABS
  8. INSULIN [Concomitant]
     Dosage: 1 INJ
  9. NEXIUM [Concomitant]
  10. TRICOR [Concomitant]
     Dosage: TRICOR 145MG TABS
  11. JANUVIA [Concomitant]
     Dosage: 1 DF:JANUVIA 100MG TABS
  12. GLIMEPIRIDE [Concomitant]

REACTIONS (1)
  - ANAEMIA [None]
